FAERS Safety Report 17033598 (Version 1)
Quarter: 2019Q4

REPORT INFORMATION
  Report Type: Spontaneous
  Country: US (occurrence: US)
  Receive Date: 20191015
  Receipt Date: 20191015
  Transmission Date: 20200122
  Serious: No
  Sender: FDA-Public Use
  Company Number: None

PATIENT
  Age: 82 Year
  Sex: Male

DRUGS (1)
  1. VOTRIENT [Suspect]
     Active Substance: PAZOPANIB HYDROCHLORIDE
     Dosage: ?          OTHER DOSE:NOT AVAILABLE;?
     Route: 048
     Dates: start: 201809

REACTIONS (1)
  - Weight decreased [None]

NARRATIVE: CASE EVENT DATE: 20191015
